FAERS Safety Report 25619504 (Version 2)
Quarter: 2025Q3

REPORT INFORMATION
  Report Type: Spontaneous
  Country: JP (occurrence: JP)
  Receive Date: 20250729
  Receipt Date: 20250828
  Transmission Date: 20251020
  Serious: Yes (Hospitalization, Other)
  Sender: EISAI
  Company Number: JP-Eisai-202503269_DVG_P_1

PATIENT
  Age: 32 Year
  Sex: Female

DRUGS (3)
  1. DAYVIGO [Suspect]
     Active Substance: LEMBOREXANT
     Indication: Product used for unknown indication
     Dosage: ONCE
     Route: 048
     Dates: start: 20250612, end: 20250612
  2. CLOTIAZEPAM [Suspect]
     Active Substance: CLOTIAZEPAM
     Indication: Overdose
     Route: 048
     Dates: start: 20250612, end: 20250612
  3. RISPERIDONE [Suspect]
     Active Substance: RISPERIDONE
     Indication: Overdose
     Route: 048
     Dates: start: 20250612, end: 20250612

REACTIONS (3)
  - Somnolence [Recovered/Resolved]
  - Suicide attempt [Unknown]
  - Intentional overdose [Unknown]

NARRATIVE: CASE EVENT DATE: 20250612
